FAERS Safety Report 6114886-6 (Version None)
Quarter: 2009Q1

REPORT INFORMATION
  Report Type: 
  Country: None (occurrence: None)
  Receive Date: 20090313
  Receipt Date: 20090302
  Transmission Date: 20090719
  Serious: Yes (Hospitalization)
  Sender: FDA-Public Use
  Company Number: PHHY2009JP05466

PATIENT
  Sex: Male

DRUGS (4)
  1. GLEEVEC [Suspect]
     Indication: GASTROINTESTINAL STROMAL TUMOUR
     Dosage: 400MG DAILY
     Route: 048
     Dates: start: 20030101
  2. GLEEVEC [Suspect]
     Route: 048
  3. GLEEVEC [Suspect]
     Dosage: 600MG DAILY
     Route: 048
     Dates: start: 20081201
  4. CYANOCOBALAMIN [Concomitant]
     Indication: HERNIA

REACTIONS (7)
  - HYPOAESTHESIA [None]
  - MALIGNANT NEOPLASM PROGRESSION [None]
  - METASTASES TO LIVER [None]
  - METASTASES TO RETROPERITONEUM [None]
  - OEDEMA PERIPHERAL [None]
  - SURGERY [None]
  - TUMOUR LYSIS SYNDROME [None]
